FAERS Safety Report 23344072 (Version 2)
Quarter: 2024Q1

REPORT INFORMATION
  Report Type: Spontaneous
  Country: FR (occurrence: FR)
  Receive Date: 20231227
  Receipt Date: 20240321
  Transmission Date: 20240409
  Serious: Yes (Hospitalization, Other)
  Sender: FDA-Public Use
  Company Number: None

PATIENT
  Age: 63 Year
  Sex: Male
  Weight: 118.5 kg

DRUGS (7)
  1. SODIUM CHLORIDE [Suspect]
     Active Substance: SODIUM CHLORIDE
     Indication: Fluid replacement
     Dosage: 9 G (GRAM) ONCE IN TOTAL
     Route: 042
     Dates: start: 20231019, end: 20231019
  2. POTASSIUM CHLORIDE [Interacting]
     Active Substance: POTASSIUM CHLORIDE
     Indication: Hypokalaemia
     Dosage: 1.5 G (GRAM), ONCE TOTAL
     Route: 042
     Dates: start: 20231019, end: 20231019
  3. MAGNESIUM SULFATE [Interacting]
     Active Substance: MAGNESIUM SULFATE\MAGNESIUM SULFATE HEPTAHYDRATE
     Indication: Mineral supplementation
     Dosage: 1.5 G (GRAM), ONCE IN TOTAL
     Route: 042
     Dates: start: 20231019, end: 20231019
  4. PYRIDOXINE [Interacting]
     Active Substance: PYRIDOXINE
     Indication: Vitamin supplementation
     Dosage: 500 MG (MILLIGRAM), ONCE IN TOTAL
     Route: 042
     Dates: start: 20231019, end: 20231019
  5. CALCIUM CHLORIDE [Interacting]
     Active Substance: CALCIUM CHLORIDE
     Indication: Hypocalcaemia
     Dosage: 2 G (GRAM), ONCE IN TOTAL
     Route: 042
     Dates: start: 20231019, end: 20231019
  6. THIAMINE [Interacting]
     Active Substance: THIAMINE
     Indication: Vitamin supplementation
     Dosage: 1000 MG (MILLIGRAM), ONCE IN TOTAL
     Route: 042
     Dates: start: 20231019, end: 20231019
  7. NICOTINAMIDE [Interacting]
     Active Substance: NIACINAMIDE
     Indication: Vitamin supplementation
     Dosage: 300 MG (MILLIGRAM), ONCE TOTAL
     Route: 042
     Dates: start: 20231019, end: 20231019

REACTIONS (3)
  - Injection site extravasation [Recovered/Resolved]
  - Injection site necrosis [Recovered/Resolved]
  - Drug interaction [Recovered/Resolved]

NARRATIVE: CASE EVENT DATE: 20231019
